FAERS Safety Report 5771164-2 (Version None)
Quarter: 2008Q2

REPORT INFORMATION
  Report Type: 
  Country: None (occurrence: None)
  Receive Date: 20080613
  Receipt Date: 20080519
  Transmission Date: 20081010
  Serious: No
  Sender: FDA-Public Use
  Company Number: US-ABBOTT-08P-163-0455215-00

PATIENT
  Sex: Female
  Weight: 109.87 kg

DRUGS (13)
  1. HUMIRA [Suspect]
     Indication: PSORIATIC ARTHROPATHY
     Route: 058
  2. HUMIRA [Suspect]
     Route: 058
     Dates: start: 20060401, end: 20060601
  3. HUMIRA [Suspect]
     Route: 058
     Dates: start: 20060601, end: 20070501
  4. HUMIRA [Suspect]
     Route: 058
     Dates: end: 20080520
  5. HUMIRA [Suspect]
  6. HUMIRA [Suspect]
     Indication: PSORIATIC ARTHROPATHY
     Route: 058
     Dates: start: 20080520
  7. LENTIS [Concomitant]
     Indication: DIABETES MELLITUS
     Dosage: EVERY EVENING DAILY
     Route: 058
     Dates: start: 20070901
  8. INSULIN ASPART [Concomitant]
     Indication: DIABETES MELLITUS
     Dosage: PRN WITH MEALS IF HIGH
     Route: 058
     Dates: start: 20070901
  9. KARVEA HCT [Concomitant]
     Indication: HYPERTENSION
     Dosage: 300/12.5 MG ONE TIME DAILY
     Route: 048
     Dates: start: 20030101
  10. EMERRIL [Concomitant]
     Indication: DIABETES MELLITUS
     Route: 048
     Dates: start: 20070101
  11. OXYCODONE HYDROCHLORIDE [Concomitant]
     Indication: INTERVERTEBRAL DISC DISORDER
     Route: 048
  12. LEVOTHYROXINE SODIUM [Concomitant]
     Indication: AUTOIMMUNE THYROIDITIS
     Route: 048
     Dates: start: 20070801
  13. LEVOTHYROXINE SODIUM [Concomitant]
     Dosage: DIAGNOSED 25 YEARS AGO, VARIED DIAGNOSED 25 YEARS AGO, VARIED DOSES
     Route: 048
     Dates: start: 19830101, end: 20070801

REACTIONS (6)
  - COUGH [None]
  - HYPERSENSITIVITY [None]
  - INTERSTITIAL LUNG DISEASE [None]
  - NASAL CONGESTION [None]
  - RHINORRHOEA [None]
  - SINUSITIS [None]
